FAERS Safety Report 5194250-7 (Version None)
Quarter: 2006Q4

REPORT INFORMATION
  Report Type: 
  Country: None (occurrence: None)
  Receive Date: 20061228
  Receipt Date: 20061221
  Transmission Date: 20070319
  Serious: Yes (Death)
  Sender: FDA-Public Use
  Company Number: IT-BOEHRINGER INGELHEIM PHARMACEUTICALS, INC.-2006-DE-06820GD

PATIENT

DRUGS (3)
  1. TELMISARTAN [Suspect]
     Indication: CARDIAC FAILURE CONGESTIVE
     Dosage: TARGET DOSE 80 MG
  2. ANGIOTENSIN-CONVERTING ENZYME INHIBITOR [Suspect]
     Indication: CARDIAC FAILURE CONGESTIVE
  3. ANTI-HYPERTENSIVE AGENT [Suspect]
     Indication: CARDIAC FAILURE CONGESTIVE

REACTIONS (4)
  - CARDIAC FAILURE CONGESTIVE [None]
  - CARDIOVASCULAR DISORDER [None]
  - DEATH [None]
  - HYPOTENSION [None]
